FAERS Safety Report 5703889-9 (Version None)
Quarter: 2008Q2

REPORT INFORMATION
  Report Type: 
  Country: None (occurrence: None)
  Receive Date: 20080414
  Receipt Date: 20080403
  Transmission Date: 20081010
  Serious: Yes (Hospitalization)
  Sender: FDA-Public Use
  Company Number: NL-JNJFOC-20070503150

PATIENT
  Sex: Male
  Weight: 76 kg

DRUGS (8)
  1. INFLIXIMAB, RECOMBINANT [Suspect]
     Indication: ARTHRITIS
     Route: 042
  2. METHOTREXATE [Concomitant]
  3. FOLIC ACID [Concomitant]
  4. NEXIUM [Concomitant]
  5. CALCICHEW D3 [Concomitant]
     Indication: NUTRITIONAL SUPPORT
  6. CITALOPRAM HYDROBROMIDE [Concomitant]
     Indication: DEPRESSION
  7. TEMAZEPAM [Concomitant]
     Indication: SLEEP DISORDER
  8. IBUPROFEN [Concomitant]
     Indication: PAIN

REACTIONS (2)
  - ARTHRITIS BACTERIAL [None]
  - DIARRHOEA [None]
